FAERS Safety Report 7491363-1 (Version None)
Quarter: 2011Q2

REPORT INFORMATION
  Report Type: 
  Country: None (occurrence: None)
  Receive Date: 20110519
  Receipt Date: 20110510
  Transmission Date: 20111010
  Serious: Yes (Hospitalization)
  Sender: FDA-Public Use
  Company Number: FR-ASTRAZENECA-2011SE28964

PATIENT
  Age: 28859 Day
  Sex: Male

DRUGS (11)
  1. FOLIC ACID [Concomitant]
  2. ACETAMINOPHEN [Suspect]
     Indication: PAIN
     Route: 048
     Dates: start: 20110325, end: 20110414
  3. LOVENOX [Suspect]
     Indication: PROPHYLAXIS
     Route: 058
     Dates: start: 20110325, end: 20110412
  4. FLAGYL [Suspect]
     Dates: start: 20110330, end: 20110405
  5. NEURONTIN [Concomitant]
  6. SECTRAL [Concomitant]
  7. PYOSTACINE [Suspect]
     Indication: DECUBITUS ULCER
     Route: 048
     Dates: start: 20110405, end: 20110415
  8. OFLOXACIN [Suspect]
     Indication: OSTEITIS
     Dates: start: 20110330, end: 20110405
  9. FOSAVANCE [Concomitant]
  10. NEXIUM [Suspect]
     Route: 048
     Dates: start: 20110325, end: 20110414
  11. EFFEXOR [Suspect]
     Indication: DEPRESSION
     Route: 048
     Dates: end: 20110413

REACTIONS (5)
  - ANAEMIA [None]
  - LYMPHOPENIA [None]
  - THROMBOCYTOPENIA [None]
  - NEUTROPENIA [None]
  - PANCYTOPENIA [None]
